FAERS Safety Report 6640594-9 (Version None)
Quarter: 2010Q1

REPORT INFORMATION
  Report Type: 
  Country: None (occurrence: None)
  Receive Date: 20100318
  Receipt Date: 20100310
  Transmission Date: 20100710
  Serious: Yes (Hospitalization)
  Sender: FDA-Public Use
  Company Number: BR-ASTRAZENECA-2010SE10619

PATIENT
  Age: 31 Year
  Sex: Female
  Weight: 68 kg

DRUGS (2)
  1. SEROQUEL [Suspect]
     Dosage: 2 BLISTERS
     Route: 048
     Dates: start: 20100308, end: 20100308
  2. SERTRALINE HCL [Suspect]
     Dosage: 7 TABLETS
     Dates: start: 20100308, end: 20100308

REACTIONS (3)
  - INTENTIONAL OVERDOSE [None]
  - SOMNOLENCE [None]
  - SUICIDE ATTEMPT [None]
